FAERS Safety Report 4660510-9 (Version None)
Quarter: 2005Q2

REPORT INFORMATION
  Report Type: 
  Country: None (occurrence: None)
  Receive Date: 20050511
  Receipt Date: 20050511
  Transmission Date: 20051028
  Serious: Yes (Life-Threatening, Hospitalization, Disabling)
  Sender: FDA-Public Use
  Company Number: None

PATIENT
  Sex: Female
  Weight: 58.9676 kg

DRUGS (1)
  1. LEXAPRO [Suspect]
     Indication: SEXUAL DYSFUNCTION
     Dosage: 5 MG - 20MG/DAY, ORALLY
     Route: 048
     Dates: start: 20020913, end: 20030101

REACTIONS (16)
  - AGITATION [None]
  - ANXIETY [None]
  - DRUG INTOLERANCE [None]
  - DYSARTHRIA [None]
  - DYSGRAPHIA [None]
  - ECONOMIC PROBLEM [None]
  - FEAR [None]
  - FEELING ABNORMAL [None]
  - FEELINGS OF WORTHLESSNESS [None]
  - HYPERSENSITIVITY [None]
  - IMPAIRED WORK ABILITY [None]
  - INAPPROPRIATE SCHEDULE OF DRUG ADMINISTRATION [None]
  - INJURY [None]
  - INTENTIONAL MISUSE [None]
  - TENSION [None]
  - TREMOR [None]
